FAERS Safety Report 5493501-9 (Version None)
Quarter: 2007Q4

REPORT INFORMATION
  Report Type: 
  Country: None (occurrence: None)
  Receive Date: 20071023
  Receipt Date: 20071011
  Transmission Date: 20080405
  Serious: Yes (Hospitalization)
  Sender: FDA-Public Use
  Company Number: US-ELI_LILLY_AND_COMPANY-US200709004265

PATIENT
  Age: 41 Year
  Sex: Male

DRUGS (4)
  1. HUMATROPE [Suspect]
     Indication: HYPOPITUITARISM
     Dosage: UNK, UNKNOWN
  2. ERGOCALCIFEROL [Concomitant]
     Dosage: UNK, UNKNOWN
  3. TESTOSTERONE [Concomitant]
     Dosage: UNK, UNKNOWN
  4. SYNTHROID [Concomitant]
     Dosage: UNK, UNKNOWN

REACTIONS (2)
  - SARCOIDOSIS [None]
  - VENTRICULOPERITONEAL SHUNT MALFUNCTION [None]
